FAERS Safety Report 19425395 (Version 3)
Quarter: 2021Q3

REPORT INFORMATION
  Report Type: Spontaneous
  Country: US (occurrence: US)
  Receive Date: 20210616
  Receipt Date: 20210726
  Transmission Date: 20211014
  Serious: No
  Sender: FDA-Public Use
  Company Number: US-ORGANON-O2106USA001232

PATIENT
  Age: 34 Year
  Sex: Female
  Weight: 87.91 kg

DRUGS (3)
  1. IRON [Concomitant]
     Active Substance: IRON
  2. NEXPLANON [Suspect]
     Active Substance: ETONOGESTREL
     Dosage: 1 IMPLANT
     Route: 059
     Dates: start: 20171023, end: 20201103
  3. NEXPLANON [Suspect]
     Active Substance: ETONOGESTREL
     Indication: CONTRACEPTION
     Dosage: 68 MILLIGRAM, LEFT UPPER ARM (NON?DOMINANT ARM)
     Route: 059
     Dates: start: 20201103, end: 20210525

REACTIONS (4)
  - Complication of device removal [Recovered/Resolved]
  - Incorrect product administration duration [Recovered/Resolved]
  - Vaginal haemorrhage [Unknown]
  - Device breakage [Recovered/Resolved]

NARRATIVE: CASE EVENT DATE: 20201023
